FAERS Safety Report 8112428-7 (Version None)
Quarter: 2012Q1

REPORT INFORMATION
  Report Type: 
  Country: None (occurrence: None)
  Receive Date: 20120203
  Receipt Date: 20120126
  Transmission Date: 20120608
  Serious: Yes (Hospitalization, Other)
  Sender: FDA-Public Use
  Company Number: US-CELGENEUS-163-21880-11112937

PATIENT
  Sex: Male

DRUGS (7)
  1. POTASSIUM CHLORIDE [Concomitant]
     Dosage: 20 MILLIEQUIVALENTS
     Route: 065
     Dates: start: 20091201
  2. INSULIN [Concomitant]
     Indication: DIABETES MELLITUS
     Dosage: 40 GRAM
     Route: 065
     Dates: start: 20091201
  3. SIMVASTATIN [Concomitant]
     Dosage: 20 MILLIGRAM
     Route: 065
     Dates: start: 20050701
  4. AMLODIPINE [Concomitant]
     Indication: HYPERTENSION
     Dosage: 10 MILLIGRAM
     Route: 065
     Dates: start: 20091201
  5. OMEPRAZOLE [Concomitant]
     Dosage: 20 MILLIGRAM
     Route: 065
     Dates: start: 20091201
  6. REVLIMID [Suspect]
     Dosage: 10 MILLIGRAM
     Route: 048
     Dates: start: 20111121
  7. REVLIMID [Suspect]
     Dosage: 15 MILLIGRAM
     Route: 048
     Dates: start: 20111105

REACTIONS (3)
  - RENAL IMPAIRMENT [None]
  - DIARRHOEA [None]
  - VIITH NERVE PARALYSIS [None]
